FAERS Safety Report 21491232 (Version 2)
Quarter: 2022Q4

REPORT INFORMATION
  Report Type: Spontaneous
  Country: RU (occurrence: None)
  Receive Date: 20221021
  Receipt Date: 20221206
  Transmission Date: 20230113
  Serious: Yes (Other)
  Sender: FDA-Public Use
  Company Number: 2022A350210

PATIENT
  Sex: Male

DRUGS (1)
  1. SYMBICORT [Suspect]
     Active Substance: BUDESONIDE\FORMOTEROL FUMARATE DIHYDRATE
     Dosage: 160/4.5 MCG/INHALATION, UNKNOWN UNKNOWN
     Route: 055

REACTIONS (4)
  - Condition aggravated [Unknown]
  - Device delivery system issue [Unknown]
  - Device malfunction [Unknown]
  - Drug ineffective [Unknown]
